FAERS Safety Report 15587780 (Version 1)
Quarter: 2018Q4

REPORT INFORMATION
  Report Type: Spontaneous
  Country: US (occurrence: US)
  Receive Date: 20181101
  Receipt Date: 20181101
  Transmission Date: 20190205
  Serious: No
  Sender: FDA-Public Use
  Company Number: None

PATIENT
  Age: 74 Year

DRUGS (2)
  1. AMILORIDE [Suspect]
     Active Substance: AMILORIDE
     Indication: FLUID RETENTION
  2. AMILORIDE [Suspect]
     Active Substance: AMILORIDE
     Indication: BLOOD PRESSURE MEASUREMENT
     Route: 048
     Dates: start: 201809, end: 201810

REACTIONS (3)
  - Blood pressure increased [None]
  - Dizziness [None]
  - Product quality issue [None]

NARRATIVE: CASE EVENT DATE: 20181028
